FAERS Safety Report 11032829 (Version 1)
Quarter: 2015Q2

REPORT INFORMATION
  Report Type: Report from Study
  Country: TR (occurrence: TR)
  Receive Date: 20150415
  Receipt Date: 20150415
  Transmission Date: 20150821
  Serious: Yes (Death)
  Sender: FDA-Public Use
  Company Number: TR-PFIZER INC-2015124051

PATIENT
  Sex: Female

DRUGS (4)
  1. VORICONAZOLE. [Suspect]
     Active Substance: VORICONAZOLE
     Indication: PNEUMONIA FUNGAL
     Dosage: UNK
  2. VORICONAZOLE. [Suspect]
     Active Substance: VORICONAZOLE
     Indication: GEOTRICHUM INFECTION
  3. CASPOFUNGIN [Suspect]
     Active Substance: CASPOFUNGIN
     Indication: GEOTRICHUM INFECTION
  4. CASPOFUNGIN [Suspect]
     Active Substance: CASPOFUNGIN
     Indication: PNEUMONIA FUNGAL
     Dosage: UNK

REACTIONS (1)
  - Drug ineffective [Fatal]
